FAERS Safety Report 8854323 (Version 2)
Quarter: 2012Q4

REPORT INFORMATION
  Report Type: 
  Country: US (occurrence: US)
  Receive Date: 20121023
  Receipt Date: 20121213
  Transmission Date: 20130627
  Serious: Yes (Other)
  Sender: FDA-Public Use
  Company Number: US-BAYER-2012-108304

PATIENT
  Age: 35 Year
  Sex: Female
  Weight: 90.25 kg

DRUGS (2)
  1. MIRENA [Suspect]
     Indication: CONTRACEPTION
     Dosage: 20 mcg/24hr, CONT
     Route: 015
     Dates: start: 20110810
  2. MIRENA [Suspect]
     Indication: MENORRHAGIA

REACTIONS (10)
  - Device dislocation [None]
  - Abdominal pain [None]
  - Genital haemorrhage [None]
  - Menorrhagia [None]
  - Dysmenorrhoea [None]
  - Premenstrual cramps [None]
  - Discomfort [None]
  - Pain [None]
  - Device issue [None]
  - Drug ineffective [None]
